FAERS Safety Report 18778865 (Version 1)
Quarter: 2021Q1

REPORT INFORMATION
  Report Type: Report from Study
  Country: US (occurrence: US)
  Receive Date: 20210124
  Receipt Date: 20210124
  Transmission Date: 20210419
  Serious: Yes (Other)
  Sender: FDA-Public Use
  Company Number: US-BEH-2020126787

PATIENT
  Age: 15 Year
  Sex: Female

DRUGS (2)
  1. HAEGARDA [Suspect]
     Active Substance: HUMAN C1-ESTERASE INHIBITOR
     Indication: HEREDITARY ANGIOEDEMA
     Dosage: 3250 INTERNATIONAL UNIT, TWICE WEEKLY
     Route: 058
     Dates: start: 202012, end: 202012
  2. HAEGARDA [Suspect]
     Active Substance: HUMAN C1-ESTERASE INHIBITOR
     Indication: PROPHYLAXIS
     Dosage: 4000 IU
     Route: 058
     Dates: start: 20201101

REACTIONS (6)
  - Syringe issue [Unknown]
  - No adverse event [Unknown]
  - Headache [Unknown]
  - Insurance issue [Unknown]
  - No adverse event [Unknown]
  - Headache [Unknown]

NARRATIVE: CASE EVENT DATE: 202012
